FAERS Safety Report 13805938 (Version 2)
Quarter: 2018Q3

REPORT INFORMATION
  Report Type: Spontaneous
  Country: US (occurrence: US)
  Receive Date: 20170728
  Receipt Date: 20180921
  Transmission Date: 20181010
  Serious: No
  Sender: FDA-Public Use
  Company Number: US-IGSA-GTI004521

PATIENT
  Age: 75 Year
  Sex: Male

DRUGS (1)
  1. GAMUNEX?C [Suspect]
     Active Substance: HUMAN IMMUNOGLOBULIN G
     Indication: MULTIFOCAL MOTOR NEUROPATHY
     Dosage: 25 G, Q.WK.
     Route: 042

REACTIONS (4)
  - Pruritus [Not Recovered/Not Resolved]
  - Purpura [Not Recovered/Not Resolved]
  - Urticaria [Not Recovered/Not Resolved]
  - Night sweats [Not Recovered/Not Resolved]
